FAERS Safety Report 14457856 (Version 1)
Quarter: 2018Q1

REPORT INFORMATION
  Report Type: Spontaneous
  Country: US (occurrence: US)
  Receive Date: 20180128
  Receipt Date: 20180128
  Transmission Date: 20180509
  Serious: Yes (Disabling)
  Sender: FDA-Public Use
  Company Number: None

PATIENT
  Age: 61 Year
  Sex: Male
  Weight: 154.22 kg

DRUGS (2)
  1. LANTUS [Suspect]
     Active Substance: INSULIN GLARGINE
     Indication: DIABETES MELLITUS
     Dosage: 50U BEDTIME INJECTION
     Dates: start: 2015, end: 2017
  2. APIDRA [Concomitant]
     Active Substance: INSULIN GLULISINE

REACTIONS (2)
  - Pain in extremity [None]
  - Arthralgia [None]

NARRATIVE: CASE EVENT DATE: 20170415
